FAERS Safety Report 7780725-0 (Version None)
Quarter: 2011Q3

REPORT INFORMATION
  Report Type: 
  Country: None (occurrence: None)
  Receive Date: 20110927
  Receipt Date: 20110624
  Transmission Date: 20111222
  Serious: No
  Sender: FDA-Public Use
  Company Number: US-BRISTOL-MYERS SQUIBB COMPANY-15778269

PATIENT
  Age: 44 Year
  Sex: Female

DRUGS (1)
  1. AVAPRO [Suspect]
     Dosage: ON MONDAY
     Dates: start: 20110523

REACTIONS (3)
  - VOMITING [None]
  - NAUSEA [None]
  - HYPERTENSION [None]
